FAERS Safety Report 19269008 (Version 2)
Quarter: 2021Q3

REPORT INFORMATION
  Report Type: Report from Study
  Country: US (occurrence: US)
  Receive Date: 20210517
  Receipt Date: 20210702
  Transmission Date: 20211014
  Serious: Yes (Other)
  Sender: FDA-Public Use
  Company Number: NVSC2021US101894

PATIENT
  Sex: Female

DRUGS (1)
  1. PIQRAY [Suspect]
     Active Substance: ALPELISIB
     Indication: BREAST CANCER
     Dosage: 300 MG, QD
     Route: 048
     Dates: start: 202012

REACTIONS (9)
  - Breast cancer [Unknown]
  - Pain [Unknown]
  - Diabetes mellitus [Unknown]
  - Inflammation [Unknown]
  - Metastases to spine [Unknown]
  - Diarrhoea [Recovering/Resolving]
  - Malignant neoplasm progression [Unknown]
  - Arthritis [Unknown]
  - Fibromyalgia [Unknown]
